FAERS Safety Report 6910780-9 (Version None)
Quarter: 2010Q3

REPORT INFORMATION
  Report Type: 
  Country: None (occurrence: None)
  Receive Date: 20100806
  Receipt Date: 20100720
  Transmission Date: 20110219
  Serious: Yes (Hospitalization, Other)
  Sender: FDA-Public Use
  Company Number: PHFR2010GB01417

PATIENT
  Sex: Female

DRUGS (1)
  1. CLOZARIL [Suspect]
     Indication: SCHIZOPHRENIA
     Dosage: 500 MG
     Route: 048
     Dates: start: 20100415

REACTIONS (4)
  - HYPOPHAGIA [None]
  - PSYCHOTIC DISORDER [None]
  - RENAL FAILURE [None]
  - TREATMENT NONCOMPLIANCE [None]
